FAERS Safety Report 11102308 (Version 1)
Quarter: 2015Q2

REPORT INFORMATION
  Report Type: Spontaneous
  Country: US (occurrence: None)
  Receive Date: 20150507
  Receipt Date: 20150507
  Transmission Date: 20150821
  Serious: Yes (Other)
  Sender: FDA-Public Use
  Company Number: US-H14001-15-00658

PATIENT
  Age: 71 Year
  Sex: Male

DRUGS (2)
  1. OCTREOTIDE [Suspect]
     Active Substance: OCTREOTIDE
     Indication: OESOPHAGEAL VARICES HAEMORRHAGE
     Route: 041
  2. PROTONIX [Concomitant]
     Active Substance: PANTOPRAZOLE SODIUM

REACTIONS (2)
  - Sinus bradycardia [None]
  - Hypothermia [None]
